FAERS Safety Report 23334229 (Version 1)
Quarter: 2023Q4

REPORT INFORMATION
  Report Type: Spontaneous
  Country: ES (occurrence: ES)
  Receive Date: 20231223
  Receipt Date: 20231223
  Transmission Date: 20240110
  Serious: Yes (Hospitalization, Other)
  Sender: FDA-Public Use
  Company Number: ES-AMGEN-ESPSP2023226080

PATIENT
  Age: 32 Year
  Sex: Male

DRUGS (2)
  1. NPLATE [Suspect]
     Active Substance: ROMIPLOSTIM
     Indication: Immune thrombocytopenia
     Dosage: DOSES BETWEEN 125 AND 200 MICROGRAM, QWK
     Route: 065
     Dates: start: 201401
  2. NPLATE [Suspect]
     Active Substance: ROMIPLOSTIM
     Dosage: 500 MICROGRAM
     Route: 065

REACTIONS (5)
  - Acute coronary syndrome [Recovered/Resolved]
  - Acute myocardial infarction [Recovered/Resolved]
  - Troponin increased [Recovered/Resolved]
  - Thrombocytopenia [Recovered/Resolved]
  - Respiratory tract infection [Recovered/Resolved]
